FAERS Safety Report 8514134-3 (Version None)
Quarter: 2012Q3

REPORT INFORMATION
  Report Type: 
  Country: None (occurrence: None)
  Receive Date: 20120717
  Receipt Date: 20120706
  Transmission Date: 20120928
  Serious: Yes (Hospitalization)
  Sender: FDA-Public Use
  Company Number: CA-JNJFOC-20120602447

PATIENT
  Sex: Female
  Weight: 91 kg

DRUGS (5)
  1. REMICADE [Suspect]
     Indication: PSORIASIS
     Route: 042
     Dates: start: 20090926
  2. METFORMIN HCL [Concomitant]
     Route: 065
  3. LIPITOR [Concomitant]
     Route: 065
  4. ALTACE [Concomitant]
     Route: 065
  5. NOVO-HYDRAZIDE [Concomitant]
     Route: 065

REACTIONS (3)
  - RENAL ABSCESS [None]
  - CYST [None]
  - URINARY TRACT INFECTION [None]
